FAERS Safety Report 11688244 (Version 2)
Quarter: 2015Q4

REPORT INFORMATION
  Report Type: Spontaneous
  Country: US (occurrence: US)
  Receive Date: 20151030
  Receipt Date: 20151110
  Transmission Date: 20160304
  Serious: Yes (Hospitalization, Other)
  Sender: FDA-Public Use
  Company Number: US-ASTRAZENECA-2007BM16591

PATIENT
  Age: 63 Year
  Sex: Male
  Weight: 113.4 kg

DRUGS (8)
  1. BYETTA [Suspect]
     Active Substance: EXENATIDE
     Indication: TYPE 2 DIABETES MELLITUS
     Route: 058
  2. EXENATIDE [Concomitant]
     Active Substance: EXENATIDE
  3. GLUCOPHAGE [Concomitant]
     Active Substance: METFORMIN HYDROCHLORIDE
     Indication: DIABETES MELLITUS
  4. LISINOPRIL. [Suspect]
     Active Substance: LISINOPRIL
     Route: 048
  5. BYETTA [Suspect]
     Active Substance: EXENATIDE
     Indication: TYPE 2 DIABETES MELLITUS
     Dosage: 250 MCG/1.2 ML, 5 MCG TWO TIMES A DAY
     Route: 058
     Dates: start: 20070922
  6. PEPCID [Concomitant]
     Active Substance: FAMOTIDINE
     Indication: DYSPEPSIA
  7. TENORMIN [Suspect]
     Active Substance: ATENOLOL
     Route: 065
  8. NEOSPORIN [Concomitant]
     Active Substance: BACITRACIN ZINC\NEOMYCIN SULFATE\POLYMYXIN B SULFATE
     Indication: INJECTION SITE ERYTHEMA

REACTIONS (8)
  - Hyperhidrosis [Unknown]
  - Injection site erythema [Recovering/Resolving]
  - Abdominal distension [Not Recovered/Not Resolved]
  - Injection site pruritus [Recovering/Resolving]
  - Feeling abnormal [Recovered/Resolved]
  - Malaise [Unknown]
  - Nausea [Not Recovered/Not Resolved]
  - Dyspepsia [Unknown]

NARRATIVE: CASE EVENT DATE: 200709
